FAERS Safety Report 8915985 (Version 2)
Quarter: 2013Q1

REPORT INFORMATION
  Report Type: Spontaneous
  Country: US (occurrence: US)
  Receive Date: 20121119
  Receipt Date: 20130211
  Transmission Date: 20140127
  Serious: Yes (Hospitalization)
  Sender: FDA-Public Use
  Company Number: US-GLAXOSMITHKLINE-A1001282A

PATIENT
  Age: 76 Year
  Sex: Female

DRUGS (11)
  1. ADVAIR [Suspect]
     Indication: ASTHMA
     Dosage: 1PUFF TWICE PER DAY
     Route: 055
     Dates: start: 201104
  2. JANUMET [Concomitant]
  3. WELCHOL [Concomitant]
  4. NADOL [Concomitant]
  5. PAXIL [Concomitant]
  6. NEXIUM [Concomitant]
  7. ZOCOR [Concomitant]
  8. XANAX [Concomitant]
  9. FISH OIL [Concomitant]
  10. BIOTIN [Concomitant]
  11. ALBUTEROL [Concomitant]

REACTIONS (3)
  - Asthma [Recovered/Resolved]
  - Dyspnoea [Recovered/Resolved]
  - Chest discomfort [Recovered/Resolved]
